FAERS Safety Report 23742803 (Version 1)
Quarter: 2024Q2

REPORT INFORMATION
  Report Type: Spontaneous
  Country: VN (occurrence: VN)
  Receive Date: 20240415
  Receipt Date: 20240415
  Transmission Date: 20240716
  Serious: Yes (Death, Hospitalization, Other)
  Sender: FDA-Public Use
  Company Number: VN-BAYER-2024A054531

PATIENT
  Age: 55 Year
  Sex: Male

DRUGS (2)
  1. ULTRAVIST [Suspect]
     Active Substance: IOPROMIDE
     Indication: Computerised tomogram abdomen
     Dosage: 85 ML, ONCE
     Route: 042
     Dates: start: 20240408, end: 20240408
  2. ULTRAVIST [Suspect]
     Active Substance: IOPROMIDE
     Indication: Computerised tomogram liver

REACTIONS (2)
  - Cyanosis [Fatal]
  - Seizure [Fatal]

NARRATIVE: CASE EVENT DATE: 20240408
